FAERS Safety Report 6436919-X (Version None)
Quarter: 2009Q4

REPORT INFORMATION
  Report Type: 
  Country: None (occurrence: None)
  Receive Date: 20091109
  Receipt Date: 20091023
  Transmission Date: 20100525
  Serious: Yes (Life-Threatening, Hospitalization)
  Sender: FDA-Public Use
  Company Number: A03200905025

PATIENT
  Age: 30 Year
  Sex: Female

DRUGS (2)
  1. FLUDARABINE PHOSPHATE [Suspect]
     Dosage: ORAL
     Route: 048
     Dates: start: 20090401, end: 20090701
  2. CYCLOPHOSPHAMIDE 9CYCLOPHOSPHAMIDE) [Concomitant]

REACTIONS (4)
  - ANAEMIA [None]
  - HISTIOCYTOSIS HAEMATOPHAGIC [None]
  - INTRAVASCULAR HAEMOLYSIS [None]
  - RENAL FAILURE [None]
